FAERS Safety Report 15979919 (Version 1)
Quarter: 2019Q1

REPORT INFORMATION
  Report Type: Spontaneous
  Country: FR (occurrence: FR)
  Receive Date: 20190219
  Receipt Date: 20190219
  Transmission Date: 20190418
  Serious: Yes (Hospitalization)
  Sender: FDA-Public Use
  Company Number: FR-ACCORD-107838

PATIENT
  Age: 62 Year
  Sex: Female
  Weight: 40 kg

DRUGS (2)
  1. CISPLATIN. [Suspect]
     Active Substance: CISPLATIN
     Indication: VULVAL CANCER
     Route: 041
     Dates: start: 20171228, end: 20180330
  2. FLUOROURACIL. [Suspect]
     Active Substance: FLUOROURACIL
     Indication: VULVAL CANCER
     Route: 041
     Dates: start: 20171228, end: 20180330

REACTIONS (1)
  - Arteriospasm coronary [Recovered/Resolved]

NARRATIVE: CASE EVENT DATE: 20180424
